FAERS Safety Report 13859234 (Version 4)
Quarter: 2018Q3

REPORT INFORMATION
  Report Type: Spontaneous
  Country: BE (occurrence: BE)
  Receive Date: 20170811
  Receipt Date: 20180905
  Transmission Date: 20181010
  Serious: Yes (Hospitalization, Other)
  Sender: FDA-Public Use
  Company Number: BE-AUROBINDO-AUR-APL-2017-38527

PATIENT
  Age: 11 Year
  Sex: Male

DRUGS (30)
  1. METHOTREXATE. [Concomitant]
     Active Substance: METHOTREXATE
     Indication: ACUTE LYMPHOCYTIC LEUKAEMIA
     Dosage: 5 G/M2, CYCLICAL,HIGH DOSE
     Route: 065
  2. METHOTREXATE. [Concomitant]
     Active Substance: METHOTREXATE
     Indication: ACUTE LYMPHOCYTIC LEUKAEMIA
     Dosage: 5 G/M2, UNK
     Route: 065
  3. CYCLOPHOSPHAMIDE. [Concomitant]
     Active Substance: CYCLOPHOSPHAMIDE
     Dosage: 1000 MG/M2,UNK
     Route: 065
  4. UROMITEXAN [Concomitant]
     Active Substance: MESNA
     Dosage: 350 MG/M2, UNK
     Route: 065
  5. ONDANSETRON [Interacting]
     Active Substance: ONDANSETRON
     Indication: VOMITING
     Dosage: 5 MG/M2, BID
     Route: 042
  6. FOLINIC ACID [Concomitant]
     Active Substance: LEUCOVORIN
     Indication: ACUTE LYMPHOCYTIC LEUKAEMIA
     Dosage: CYCLICAL
     Route: 065
  7. METHOTREXATE. [Concomitant]
     Active Substance: METHOTREXATE
     Dosage: ()
  8. UROMITEXAN [Concomitant]
     Active Substance: MESNA
     Indication: ACUTE LYMPHOCYTIC LEUKAEMIA
     Dosage: 350 MG/M2, UNK
     Route: 065
  9. ONDANSETRON [Interacting]
     Active Substance: ONDANSETRON
     Indication: ANTIEMETIC SUPPORTIVE CARE
     Dosage: 5 MG/M2, TWICE DAILY
     Route: 042
  10. DIPIPERON [Interacting]
     Active Substance: PIPAMPERONE
     Indication: ANGER
     Dosage: 30 MG, QD
     Route: 065
  11. CYCLOPHOSPHAMIDE. [Concomitant]
     Active Substance: CYCLOPHOSPHAMIDE
     Dosage: ()
  12. UROMITEXAN [Concomitant]
     Active Substance: MESNA
     Dosage: 350 MG/M2,UNK
     Route: 065
  13. VINCRISTINE [Concomitant]
     Active Substance: VINCRISTINE
     Dosage: ()
  14. DIPIPERON [Interacting]
     Active Substance: PIPAMPERONE
     Dosage: ()
  15. VINCRISTINE [Concomitant]
     Active Substance: VINCRISTINE
     Indication: ACUTE LYMPHOCYTIC LEUKAEMIA
     Dosage: 1.5 MG/M2, UNK
     Route: 065
  16. DIPIPERON [Interacting]
     Active Substance: PIPAMPERONE
     Indication: REACTIVE ATTACHMENT DISORDER OF INFANCY OR EARLY CHILDHOOD
     Dosage: IN THE MORNING
     Route: 065
  17. DIPIPERON [Interacting]
     Active Substance: PIPAMPERONE
     Dosage: 30 MG, QD
     Route: 065
  18. METHOTREXATE. [Concomitant]
     Active Substance: METHOTREXATE
     Dosage: 5 G/M2, HIGH DOSE (5G/M2)
     Route: 065
  19. CYCLOPHOSPHAMIDE. [Concomitant]
     Active Substance: CYCLOPHOSPHAMIDE
     Indication: ACUTE LYMPHOCYTIC LEUKAEMIA
     Dosage: 1000 MG/M2, UNK
     Route: 065
  20. CERUBIDIN [Concomitant]
     Active Substance: DAUNORUBICIN
     Indication: ACUTE LYMPHOCYTIC LEUKAEMIA
  21. ONDANSETRON [Suspect]
     Active Substance: ONDANSETRON
     Indication: PROPHYLAXIS OF NAUSEA AND VOMITING
     Dosage: 5 MILLIGRAM/SQ. METER,12 HOUR
     Route: 065
  22. ONDANSETRON [Interacting]
     Active Substance: ONDANSETRON
     Indication: PROPHYLAXIS OF NAUSEA AND VOMITING
  23. DIPIPERON [Interacting]
     Active Substance: PIPAMPERONE
     Indication: AGGRESSION
     Dosage: IN THE EVENING
     Route: 065
  24. DIPIPERON [Interacting]
     Active Substance: PIPAMPERONE
     Dosage: 10MG IN THE MORNING + 20MG IN THE EVENING
     Route: 065
  25. UROMITEXAN [Concomitant]
     Active Substance: MESNA
     Dosage: ()
  26. FOLINATE CALCIUM [Concomitant]
     Active Substance: LEUCOVORIN CALCIUM
     Indication: ACUTE LYMPHOCYTIC LEUKAEMIA
     Dosage: 15 MG/M2, UNK
     Route: 065
  27. CERUBIDIN [Concomitant]
     Active Substance: DAUNORUBICIN
     Indication: ACUTE LYMPHOCYTIC LEUKAEMIA
     Dosage: 30 MG/M2, UNK
     Route: 065
  28. ONDANSETRON [Interacting]
     Active Substance: ONDANSETRON
     Indication: VOMITING
  29. PIPAMPERONE [Interacting]
     Active Substance: PIPAMPERONE
     Indication: REACTIVE ATTACHMENT DISORDER OF INFANCY OR EARLY CHILDHOOD
     Dosage: 10 MG IN THE MORNING AND 20 MG IN THE EVENING, 12 HOUR
     Route: 065
  30. DIPIPERON [Interacting]
     Active Substance: PIPAMPERONE
     Dosage: ()

REACTIONS (2)
  - Drug interaction [Unknown]
  - Electrocardiogram QT prolonged [Recovering/Resolving]
